FAERS Safety Report 6213904-4 (Version None)
Quarter: 2009Q2

REPORT INFORMATION
  Report Type: 
  Country: None (occurrence: None)
  Receive Date: 20090602
  Receipt Date: 20090602
  Transmission Date: 20091009
  Serious: Yes (Hospitalization, Other)
  Sender: FDA-Public Use
  Company Number: None

PATIENT
  Age: 57 Year
  Sex: Female
  Weight: 79.3795 kg

DRUGS (1)
  1. LEVAQUIN [Suspect]
     Indication: UPPER RESPIRATORY TRACT INFECTION
     Dates: start: 20090118, end: 20090124

REACTIONS (6)
  - ARTHRALGIA [None]
  - IMPAIRED WORK ABILITY [None]
  - POST PROCEDURAL INFECTION [None]
  - TENDON DISORDER [None]
  - TENDON GRAFT [None]
  - TRANSPLANT FAILURE [None]
